FAERS Safety Report 9060744 (Version 1)
Quarter: 2013Q1

REPORT INFORMATION
  Report Type: Spontaneous
  Country: GB (occurrence: GB)
  Receive Date: 20130204
  Receipt Date: 20130204
  Transmission Date: 20140127
  Serious: Yes (Death)
  Sender: FDA-Public Use
  Company Number: GB-MYLANLABS-2013S1001483

PATIENT
  Sex: 0

DRUGS (4)
  1. PROPRANOLOL [Suspect]
     Route: 064
  2. VENLAFAXINE [Suspect]
     Route: 064
  3. ZOPICLONE [Suspect]
     Route: 064
  4. AMITRIPTYLINE [Suspect]
     Route: 064

REACTIONS (2)
  - Exposure during pregnancy [Unknown]
  - Foetal death [Fatal]
